FAERS Safety Report 12802344 (Version 3)
Quarter: 2017Q1

REPORT INFORMATION
  Report Type: Spontaneous
  Country: US (occurrence: US)
  Receive Date: 20161003
  Receipt Date: 20170117
  Transmission Date: 20170428
  Serious: Yes (Hospitalization)
  Sender: FDA-Public Use
  Company Number: US-UNITED THERAPEUTICS-UNT-2016-015321

PATIENT
  Age: 62 Year
  Sex: Male
  Weight: 65.76 kg

DRUGS (4)
  1. SILDENAFIL CITRATE. [Concomitant]
     Active Substance: SILDENAFIL CITRATE
     Indication: PRODUCT USED FOR UNKNOWN INDICATION
  2. OPSUMIT [Concomitant]
     Active Substance: MACITENTAN
     Indication: PRODUCT USED FOR UNKNOWN INDICATION
  3. REMODULIN [Suspect]
     Active Substance: TREPROSTINIL
     Indication: PULMONARY HYPERTENSION
     Dosage: 0.030 ?G/KG, CONTINUING
     Route: 041
     Dates: start: 20160111
  4. REMODULIN [Suspect]
     Active Substance: TREPROSTINIL
     Dosage: 0.032 ?G/KG, CONTINUING
     Route: 041

REACTIONS (1)
  - Hypoxia [Unknown]

NARRATIVE: CASE EVENT DATE: 20160927
